FAERS Safety Report 17007558 (Version 3)
Quarter: 2020Q1

REPORT INFORMATION
  Report Type: Spontaneous
  Country: JP (occurrence: JP)
  Receive Date: 20191108
  Receipt Date: 20200331
  Transmission Date: 20200409
  Serious: Yes (Hospitalization, Other)
  Sender: FDA-Public Use
  Company Number: JP-AMGEN-JPNSP2019184903

PATIENT
  Age: 68 Year
  Sex: Male

DRUGS (4)
  1. DOXORUBICIN HYDROCHLORIDE. [Concomitant]
     Active Substance: DOXORUBICIN HYDROCHLORIDE
     Dosage: 60 MG/M2, EVERY 21 DAYS IN THE SECOND CYCLE
     Route: 042
     Dates: start: 20180825, end: 20180825
  2. DOXORUBICIN HYDROCHLORIDE. [Concomitant]
     Active Substance: DOXORUBICIN HYDROCHLORIDE
     Indication: SOFT TISSUE SARCOMA
     Dosage: 60 MG/M2, EVERY 21 DAYS IN THE FIRST CYCLE
     Route: 042
     Dates: start: 20180804, end: 20180804
  3. G-LASTA [Suspect]
     Active Substance: PEGFILGRASTIM
     Indication: PRODUCT USED FOR UNKNOWN INDICATION
     Dosage: 3.6 MILLIGRAM, CYCLICAL
     Route: 058
     Dates: start: 20180906, end: 20180906
  4. LENOGRASTIM RECOMBINANT [Concomitant]
     Active Substance: LENOGRASTIM
     Indication: WHITE BLOOD CELL COUNT DECREASED
     Dosage: UNK
     Route: 058

REACTIONS (4)
  - Colony stimulating factor therapy [Unknown]
  - Takayasu^s arteritis [Recovered/Resolved]
  - Off label use [Unknown]
  - Therapeutic procedure [Unknown]

NARRATIVE: CASE EVENT DATE: 20180919
